FAERS Safety Report 11753987 (Version 2)
Quarter: 2015Q4

REPORT INFORMATION
  Report Type: Report from Study
  Country: BR (occurrence: BR)
  Receive Date: 20151119
  Receipt Date: 20151127
  Transmission Date: 20160304
  Serious: Yes (Death, Hospitalization)
  Sender: FDA-Public Use
  Company Number: BR-ABBVIE-15K-020-1502125-00

PATIENT
  Age: 61 Year
  Sex: Female

DRUGS (2)
  1. HUMIRA [Suspect]
     Active Substance: ADALIMUMAB
     Indication: RHEUMATOID ARTHRITIS
     Route: 058
     Dates: start: 20130914
  2. ARAVA [Concomitant]
     Active Substance: LEFLUNOMIDE
     Indication: RHEUMATOID ARTHRITIS

REACTIONS (7)
  - Pneumonia [Fatal]
  - Influenza [Unknown]
  - Anaemia [Fatal]
  - Urinary tract infection [Unknown]
  - Dehydration [Fatal]
  - Dyspnoea [Unknown]
  - Pain [Unknown]

NARRATIVE: CASE EVENT DATE: 201506
